FAERS Safety Report 21632528 (Version 1)
Quarter: 2022Q4

REPORT INFORMATION
  Report Type: Report from Study
  Country: ES (occurrence: ES)
  Receive Date: 20221123
  Receipt Date: 20221123
  Transmission Date: 20230112
  Serious: Yes (Hospitalization, Other)
  Sender: FDA-Public Use
  Company Number: ES-BRISTOL-MYERS SQUIBB COMPANY-2022-142130

PATIENT
  Age: 71 Year
  Sex: Female
  Weight: 51.40 kg

DRUGS (18)
  1. PACLITAXEL [Suspect]
     Active Substance: PACLITAXEL
     Indication: Ductal adenocarcinoma of pancreas
     Route: 042
     Dates: start: 20220818
  2. PACLITAXEL [Suspect]
     Active Substance: PACLITAXEL
     Route: 042
     Dates: start: 20220825, end: 20220825
  3. PACLITAXEL [Suspect]
     Active Substance: PACLITAXEL
     Route: 042
     Dates: start: 20220915, end: 20220927
  4. PACLITAXEL [Suspect]
     Active Substance: PACLITAXEL
     Route: 042
     Dates: start: 20221004, end: 20221018
  5. PEMBROLIZUMAB [Suspect]
     Active Substance: PEMBROLIZUMAB
     Indication: Ductal adenocarcinoma of pancreas
     Route: 042
     Dates: start: 20220818, end: 20221018
  6. GEMCITABINE [Suspect]
     Active Substance: GEMCITABINE
     Indication: Ductal adenocarcinoma of pancreas
     Dosage: 2Q3W
     Route: 042
     Dates: start: 20220818
  7. GEMCITABINE [Suspect]
     Active Substance: GEMCITABINE
     Dosage: 2Q3W
     Route: 042
     Dates: start: 20220825, end: 20220927
  8. GEMCITABINE [Suspect]
     Active Substance: GEMCITABINE
     Dosage: 2Q3W
     Route: 042
     Dates: start: 20221004, end: 20221018
  9. METHYLPREDNISOLONE [Concomitant]
     Active Substance: METHYLPREDNISOLONE
     Indication: Product used for unknown indication
     Dates: start: 20221011
  10. ENTRESTO [Concomitant]
     Active Substance: SACUBITRIL\VALSARTAN
     Indication: Product used for unknown indication
     Dates: start: 2002
  11. EDOXABAN TOSYLATE [Concomitant]
     Active Substance: EDOXABAN TOSYLATE
     Indication: Product used for unknown indication
     Dates: start: 202106
  12. EPLERENONE [Concomitant]
     Active Substance: EPLERENONE
     Indication: Product used for unknown indication
     Dates: start: 202106
  13. ALPRAZOLAM [Concomitant]
     Active Substance: ALPRAZOLAM
     Indication: Product used for unknown indication
     Dates: start: 202106
  14. LANTUS [Concomitant]
     Active Substance: INSULIN GLARGINE
     Indication: Product used for unknown indication
     Dates: start: 20220921
  15. REPAGLINIDE [Concomitant]
     Active Substance: REPAGLINIDE
     Indication: Product used for unknown indication
     Dates: start: 20220921
  16. OMEPRAZOLE [Concomitant]
     Active Substance: OMEPRAZOLE
     Indication: Product used for unknown indication
     Dates: start: 2013
  17. PANCRELIPASE [Concomitant]
     Active Substance: PANCRELIPASE
     Indication: Product used for unknown indication
     Dates: start: 202106
  18. CARVEDILOL [Concomitant]
     Active Substance: CARVEDILOL
     Indication: Product used for unknown indication
     Dates: start: 2022

REACTIONS (1)
  - Pneumonia [Recovering/Resolving]

NARRATIVE: CASE EVENT DATE: 20221110
